FAERS Safety Report 18527467 (Version 1)
Quarter: 2020Q4

REPORT INFORMATION
  Report Type: Spontaneous
  Country: US (occurrence: US)
  Receive Date: 20201120
  Receipt Date: 20201120
  Transmission Date: 20210114
  Serious: No
  Sender: FDA-Public Use
  Company Number: None

PATIENT
  Age: 58 Year
  Sex: Female
  Weight: 56.25 kg

DRUGS (2)
  1. JAKAFI [Concomitant]
     Active Substance: RUXOLITINIB
     Dates: start: 20171025
  2. JAKAFI [Suspect]
     Active Substance: RUXOLITINIB
     Route: 048
     Dates: start: 20171025

REACTIONS (1)
  - Weight decreased [None]

NARRATIVE: CASE EVENT DATE: 20201120
